FAERS Safety Report 23409827 (Version 4)
Quarter: 2024Q1

REPORT INFORMATION
  Report Type: Spontaneous
  Country: US (occurrence: US)
  Receive Date: 20240117
  Receipt Date: 20240313
  Transmission Date: 20240409
  Serious: No
  Sender: FDA-Public Use
  Company Number: US-PFIZER INC-PV202400005551

PATIENT
  Age: 65 Year
  Sex: Female

DRUGS (1)
  1. IBRANCE [Suspect]
     Active Substance: PALBOCICLIB
     Dosage: UNK

REACTIONS (6)
  - Fatigue [Unknown]
  - Yawning [Unknown]
  - Oral pain [Unknown]
  - Headache [Recovered/Resolved]
  - Hypersomnia [Unknown]
  - Alopecia [Unknown]
